FAERS Safety Report 19577792 (Version 1)
Quarter: 2021Q3

REPORT INFORMATION
  Report Type: Spontaneous
  Country: IT (occurrence: IT)
  Receive Date: 20210719
  Receipt Date: 20210719
  Transmission Date: 20211014
  Serious: Yes (Hospitalization)
  Sender: FDA-Public Use
  Company Number: IT-ELI_LILLY_AND_COMPANY-IT202107004622

PATIENT
  Sex: Female

DRUGS (2)
  1. TALTZ [Suspect]
     Active Substance: IXEKIZUMAB
     Indication: PSORIATIC ARTHROPATHY
     Dosage: 160 MG, SINGLE
     Route: 058
     Dates: start: 20210607
  2. MOVYMIA [Concomitant]
     Indication: OSTEOPOROSIS
     Dosage: 20 MG, DAILY
     Route: 058
     Dates: start: 20210513

REACTIONS (1)
  - Pancreatitis acute [Not Recovered/Not Resolved]
